FAERS Safety Report 12235385 (Version 1)
Quarter: 2016Q2

REPORT INFORMATION
  Report Type: Spontaneous
  Country: US (occurrence: US)
  Receive Date: 20160404
  Receipt Date: 20160404
  Transmission Date: 20160815
  Serious: Yes (Disabling, Other)
  Sender: FDA-Public Use
  Company Number: US-ELI_LILLY_AND_COMPANY-US201603008852

PATIENT
  Sex: Female

DRUGS (4)
  1. HUMALOG [Suspect]
     Active Substance: INSULIN LISPRO
     Indication: TYPE 1 DIABETES MELLITUS
     Dosage: 6 U, EACH MORNING
     Route: 065
     Dates: start: 2011
  2. LANTUS [Concomitant]
     Active Substance: INSULIN GLARGINE
  3. HUMALOG [Suspect]
     Active Substance: INSULIN LISPRO
     Dosage: 2.5 U, QD
     Route: 065
     Dates: start: 2011
  4. HUMALOG [Suspect]
     Active Substance: INSULIN LISPRO
     Dosage: 3.5 U, EACH EVENING
     Route: 065
     Dates: start: 2011

REACTIONS (5)
  - Loss of consciousness [Unknown]
  - Spinal fracture [Unknown]
  - Road traffic accident [Unknown]
  - Joint injury [Unknown]
  - Accident [Unknown]
